FAERS Safety Report 23733937 (Version 1)
Quarter: 2024Q2

REPORT INFORMATION
  Report Type: Spontaneous
  Country: CN (occurrence: CN)
  Receive Date: 20240412
  Receipt Date: 20240412
  Transmission Date: 20240716
  Serious: Yes (Other)
  Sender: FDA-Public Use
  Company Number: CN-AMNEAL PHARMACEUTICALS-2024-AMRX-01214

PATIENT
  Age: 52 Year
  Sex: Female

DRUGS (1)
  1. AMLODIPINE BESYLATE [Suspect]
     Active Substance: AMLODIPINE BESYLATE
     Indication: Product used for unknown indication
     Dosage: UNK
     Route: 065

REACTIONS (7)
  - Cardiac failure high output [Recovering/Resolving]
  - Shock [Unknown]
  - Pulmonary hypertension [Recovering/Resolving]
  - Ascites [Recovered/Resolved]
  - Congestive hepatopathy [Recovered/Resolved]
  - Ischaemic hepatitis [Recovered/Resolved]
  - Overdose [Unknown]
